FAERS Safety Report 8304220-5 (Version None)
Quarter: 2012Q2

REPORT INFORMATION
  Report Type: 
  Country: None (occurrence: None)
  Receive Date: 20120423
  Receipt Date: 20120410
  Transmission Date: 20120825
  Serious: Yes (Hospitalization)
  Sender: FDA-Public Use
  Company Number: JP-UCBSA-054548

PATIENT
  Age: 48 Year
  Sex: Female

DRUGS (16)
  1. SODIUM HYALURONATE [Concomitant]
     Dosage: QS PRN
     Dates: start: 20111128
  2. CELECOXIB [Concomitant]
     Dosage: DAILY DOSE: 400 MG
     Dates: start: 20090601
  3. TACROLIMUS [Concomitant]
     Dosage: DAILY DOSE: 3 MG
     Dates: start: 20110818, end: 20120319
  4. CERTOLIZUMAB PEGOL [Suspect]
     Indication: RHEUMATOID ARTHRITIS
     Route: 058
     Dates: start: 20100120
  5. OMEPRAZOLE [Concomitant]
     Dosage: DAILY DOSE: 20 MG
     Dates: start: 20090601
  6. TACROLIMUS [Concomitant]
     Dosage: DAILY DOSE: 3 MG
     Dates: start: 20120408
  7. LEI GONG TENG [Concomitant]
     Dosage: DAILY DOSE: 3 TAB
     Dates: start: 20111222, end: 20120319
  8. ALENDRONATE SODIUM [Concomitant]
     Dates: start: 20090223
  9. FRADIOMYCIN SULFATE_METHYLPREDNISOLONE [Concomitant]
     Dosage: QS PRN
     Dates: start: 20111128
  10. SODIUM CROMOGLICATE [Concomitant]
     Dosage: QS PRN
     Dates: start: 20120312
  11. CERTOLIZUMAB PEGOL [Suspect]
     Dosage: 275-08-003: 400MG EVERY TWO WEEKS (0, 2 + 4) FOLLOWED BY 200 MG EVERY 2 WEEKS
     Route: 058
     Dates: start: 20090708
  12. PREDNISOLONE [Concomitant]
     Dosage: DAILY DOSE: 1 MG
     Dates: start: 20120215, end: 20120409
  13. PREDNISOLONE [Concomitant]
     Dosage: DAILY DOSE: 2 MG
     Dates: start: 20120410
  14. LEI GONG TENG [Concomitant]
     Dosage: DAILY DOSE: 3 TAB
     Dates: start: 20120410
  15. BAKUMONDO-TO [Concomitant]
     Dosage: DAILY: 9 G
     Dates: start: 20120215
  16. EPINASTINE HYDROCHLORIDE [Concomitant]
     Dosage: DAILY DOSE: 20 MG
     Dates: start: 20120312

REACTIONS (2)
  - PROCEDURAL PAIN [None]
  - OVARIAN NEOPLASM [None]
